FAERS Safety Report 7234337-8 (Version None)
Quarter: 2010Q4

REPORT INFORMATION
  Report Type: 
  Country: None (occurrence: None)
  Receive Date: 20101130
  Receipt Date: 20090824
  Transmission Date: 20110411
  Serious: Yes (Hospitalization)
  Sender: FDA-Public Use
  Company Number: 2009-194924-NL

PATIENT
  Age: 31 Year
  Sex: Female
  Weight: 123.3784 kg

DRUGS (12)
  1. NUVARING [Suspect]
     Indication: CONTRACEPTION
     Dosage: 1 DF
     Dates: start: 20060801, end: 20061003
  2. HYDROCHLOROTHIAZIDE [Concomitant]
  3. IMITREX [Concomitant]
  4. METOPROLOL TARTRATE [Concomitant]
  5. CLINDAMYCIN [Concomitant]
  6. FLUOXETINE [Concomitant]
  7. NASACORT [Concomitant]
  8. APAP W/ CODEINE [Concomitant]
  9. CEFUROXIME [Concomitant]
  10. DOXYCYCLINE MONOHYDRATE [Concomitant]
  11. OXYCODONE WITH APAP /00554201/ [Concomitant]
  12. TOPROL-XL [Concomitant]

REACTIONS (2)
  - PULMONARY EMBOLISM [None]
  - SKIN INFECTION [None]
